FAERS Safety Report 5831438-3 (Version None)
Quarter: 2008Q3

REPORT INFORMATION
  Report Type: 
  Country: None (occurrence: None)
  Receive Date: 20080801
  Receipt Date: 20080721
  Transmission Date: 20090109
  Serious: Yes (Other)
  Sender: FDA-Public Use
  Company Number: US-PFIZER INC-2008060803

PATIENT
  Sex: Female
  Weight: 61.363 kg

DRUGS (4)
  1. DETROL LA [Suspect]
     Indication: HYPERTONIC BLADDER
     Route: 048
  2. ALL OTHER THERAPEUTIC PRODUCTS [Concomitant]
  3. CARDIAC THERAPY [Concomitant]
  4. ANTICOAGULANTS [Concomitant]

REACTIONS (3)
  - DRUG INEFFECTIVE [None]
  - HIP FRACTURE [None]
  - URINARY INCONTINENCE [None]
